FAERS Safety Report 11591404 (Version 2)
Quarter: 2015Q4

REPORT INFORMATION
  Report Type: Report from Study
  Country: US (occurrence: US)
  Receive Date: 20151005
  Receipt Date: 20151227
  Transmission Date: 20160304
  Serious: No
  Sender: FDA-Public Use
  Company Number: US-AMGEN-USASP2015100824

PATIENT
  Age: 65 Year
  Sex: Male

DRUGS (1)
  1. ENBREL [Suspect]
     Active Substance: ETANERCEPT
     Indication: RHEUMATOID ARTHRITIS
     Dosage: 50 MG, ONCE A WEEK
     Route: 065
     Dates: start: 20101220

REACTIONS (3)
  - Artificial crown procedure [Unknown]
  - Blood test abnormal [Unknown]
  - Tooth infection [Unknown]

NARRATIVE: CASE EVENT DATE: 2015
